FAERS Safety Report 7506586-2 (Version None)
Quarter: 2011Q2

REPORT INFORMATION
  Report Type: 
  Country: None (occurrence: None)
  Receive Date: 20110411
  Receipt Date: 20101229
  Transmission Date: 20111010
  Serious: Yes (Other)
  Sender: FDA-Public Use
  Company Number: 024690

PATIENT
  Sex: Female

DRUGS (5)
  1. KEPPRA [Suspect]
     Indication: EPILEPSY
     Dosage: TOTAL DAILY DOSE 2250 , TOTAL DAILY DOSE 3000, TOTAL DAILY DOSE 3750
     Dates: start: 20100701, end: 20101201
  2. KEPPRA [Suspect]
     Indication: EPILEPSY
     Dosage: TOTAL DAILY DOSE 2250 , TOTAL DAILY DOSE 3000, TOTAL DAILY DOSE 3750
     Dates: end: 20100701
  3. KEPPRA [Suspect]
     Indication: EPILEPSY
     Dosage: TOTAL DAILY DOSE 2250 , TOTAL DAILY DOSE 3000, TOTAL DAILY DOSE 3750
     Dates: start: 20101201
  4. FOLIC ACID [Concomitant]
  5. PRENATAL VITAMINS [Concomitant]

REACTIONS (2)
  - PREGNANCY [None]
  - CONVULSION [None]
